FAERS Safety Report 7349897-6 (Version None)
Quarter: 2011Q1

REPORT INFORMATION
  Report Type: 
  Country: None (occurrence: None)
  Receive Date: 20110314
  Receipt Date: 20110308
  Transmission Date: 20110831
  Serious: Yes (Death)
  Sender: FDA-Public Use
  Company Number: JP-ASTRAZENECA-2011SE13652

PATIENT
  Age: 28241 Day
  Sex: Female

DRUGS (7)
  1. FENTANYL [Concomitant]
     Indication: ANAESTHESIA PROCEDURE
     Route: 065
     Dates: start: 20110124, end: 20110124
  2. VANCOMYCIN HYDROCHLORIDE [Concomitant]
     Route: 065
     Dates: start: 20110210, end: 20110210
  3. PRODIF [Concomitant]
     Route: 065
     Dates: start: 20110208, end: 20110211
  4. ZOSYN [Concomitant]
     Route: 065
     Dates: start: 20110208, end: 20110209
  5. ZOSYN [Concomitant]
     Route: 065
     Dates: start: 20110210, end: 20110210
  6. PRODIF [Concomitant]
     Route: 065
     Dates: start: 20110201, end: 20110203
  7. MEROPEN [Suspect]
     Indication: PERITONITIS
     Route: 042
     Dates: start: 20110124, end: 20110203

REACTIONS (1)
  - INTESTINAL HAEMORRHAGE [None]
